FAERS Safety Report 5661873-8 (Version None)
Quarter: 2008Q1

REPORT INFORMATION
  Report Type: 
  Country: None (occurrence: None)
  Receive Date: 20080305
  Receipt Date: 20080225
  Transmission Date: 20080703
  Serious: Yes (Hospitalization)
  Sender: FDA-Public Use
  Company Number: B0510370A

PATIENT
  Age: 18 Year
  Sex: Male

DRUGS (2)
  1. DEXAMPHETAMINE SULPHATE SPANSULE CAPSULE (GENERIC) (DEXTROAMPHETAMINE [Suspect]
     Indication: ATTENTION DEFICIT/HYPERACTIVITY DISORDER
     Dosage: 10 MG/ PER DAY / ORAL
     Route: 048
  2. RISPERIDONE [Suspect]
     Indication: SCHIZOPHRENIA

REACTIONS (3)
  - DYSTONIA [None]
  - SCHIZOPHRENIA [None]
  - TORTICOLLIS [None]
